FAERS Safety Report 5591407-8 (Version None)
Quarter: 2008Q1

REPORT INFORMATION
  Report Type: 
  Country: None (occurrence: None)
  Receive Date: 20080111
  Receipt Date: 20080111
  Transmission Date: 20080703
  Serious: Yes (Life-Threatening, Hospitalization)
  Sender: FDA-Public Use
  Company Number: None

PATIENT
  Age: 46 Year
  Sex: Male
  Weight: 93.441 kg

DRUGS (7)
  1. ATAZANAVIR SULFATE [Suspect]
     Indication: ACQUIRED IMMUNODEFICIENCY SYNDROME
     Dosage: 300 MG QAM PO
     Route: 048
     Dates: start: 20070601, end: 20071227
  2. RITONAVIR [Concomitant]
  3. EMTRICITABINE [Concomitant]
  4. TENOFOVIR DISOPROXIL FUMARATE [Concomitant]
  5. ARIPIPRAZOLE [Concomitant]
  6. DULOXETINE [Concomitant]
  7. METOCLOPRAMIDE [Concomitant]

REACTIONS (9)
  - ABDOMINAL PAIN [None]
  - ALANINE AMINOTRANSFERASE INCREASED [None]
  - ASPARTATE AMINOTRANSFERASE INCREASED [None]
  - BLOOD ALKALINE PHOSPHATASE INCREASED [None]
  - BLOOD BILIRUBIN INCREASED [None]
  - CD4 LYMPHOCYTES DECREASED [None]
  - DIARRHOEA [None]
  - NAUSEA [None]
  - VOMITING [None]
